FAERS Safety Report 5887137-5 (Version None)
Quarter: 2008Q3

REPORT INFORMATION
  Report Type: 
  Country: None (occurrence: None)
  Receive Date: 20080917
  Receipt Date: 20080910
  Transmission Date: 20090109
  Serious: Yes (Other)
  Sender: FDA-Public Use
  Company Number: US-PFIZER INC-2008076244

PATIENT

DRUGS (1)
  1. LIPITOR [Suspect]

REACTIONS (2)
  - HEPATIC FAILURE [None]
  - MYOCARDIAL INFARCTION [None]
